FAERS Safety Report 11157541 (Version 2)
Quarter: 2015Q2

REPORT INFORMATION
  Report Type: Not Available
  Country: ES (occurrence: ES)
  Receive Date: 20150603
  Receipt Date: 20150617
  Transmission Date: 20150821
  Serious: Yes (Life-Threatening, Hospitalization)
  Sender: FDA-Public Use
  Company Number: ES-BEH-2015051534

PATIENT
  Age: 34 Year
  Sex: Male

DRUGS (4)
  1. PRIVIGEN [Suspect]
     Active Substance: HUMAN IMMUNOGLOBULIN G
     Indication: THROMBOCYTOPENIA
     Route: 042
     Dates: start: 20150222, end: 20150225
  2. ALL OTHER THERAPEUTIC PRODUCTS [Suspect]
     Active Substance: UNSPECIFIED INGREDIENT
     Indication: IMMUNE THROMBOCYTOPENIC PURPURA
     Dosage: 125 ?G
     Route: 058
     Dates: start: 20140127, end: 20150225
  3. PRIVIGEN [Suspect]
     Active Substance: HUMAN IMMUNOGLOBULIN G
     Indication: IMMUNE THROMBOCYTOPENIC PURPURA
     Route: 042
     Dates: start: 20150222, end: 20150225
  4. PRIVIGEN [Suspect]
     Active Substance: HUMAN IMMUNOGLOBULIN G
     Indication: RESPIRATORY TRACT INFECTION
     Route: 042
     Dates: start: 20150222, end: 20150225

REACTIONS (7)
  - Arteriosclerosis coronary artery [Recovered/Resolved]
  - Coronary artery thrombosis [Recovered/Resolved]
  - Acute coronary syndrome [Unknown]
  - Acute coronary syndrome [Recovered/Resolved]
  - Myocardial necrosis marker increased [Unknown]
  - Acute coronary syndrome [Recovering/Resolving]
  - Sense of oppression [Recovered/Resolved]

NARRATIVE: CASE EVENT DATE: 20150228
